FAERS Safety Report 20395098 (Version 1)
Quarter: 2022Q1

REPORT INFORMATION
  Report Type: Report from Study
  Country: US (occurrence: US)
  Receive Date: 20220130
  Receipt Date: 20220130
  Transmission Date: 20220423
  Serious: Yes (Hospitalization)
  Sender: FDA-Public Use
  Company Number: US-SA-SAC20220127000196

PATIENT
  Age: 56 Year
  Sex: Male
  Weight: 82.7 kg

DRUGS (7)
  1. ISATUXIMAB [Suspect]
     Active Substance: ISATUXIMAB
     Indication: Plasma cell myeloma
     Dosage: UNK
     Route: 042
     Dates: start: 20211221, end: 202201
  2. ISATUXIMAB [Suspect]
     Active Substance: ISATUXIMAB
     Dosage: UNK
     Route: 042
     Dates: start: 20210628, end: 20220103
  3. CARFILZOMIB [Suspect]
     Active Substance: CARFILZOMIB
     Indication: Plasma cell myeloma
     Dosage: UNK
     Route: 042
     Dates: start: 20211221, end: 202201
  4. CARFILZOMIB [Suspect]
     Active Substance: CARFILZOMIB
     Dosage: UNK
     Route: 042
     Dates: start: 20210628, end: 20220103
  5. LENALIDOMIDE [Suspect]
     Active Substance: LENALIDOMIDE
     Indication: Plasma cell myeloma
     Dosage: UNK
     Route: 048
     Dates: start: 20211221, end: 202201
  6. DEXAMETHASONE [Suspect]
     Active Substance: DEXAMETHASONE
     Indication: Plasma cell myeloma
     Dosage: UNK
     Route: 048
     Dates: start: 20211221, end: 202201
  7. METHYLPREDNISOLONE [Suspect]
     Active Substance: METHYLPREDNISOLONE
     Dosage: UNK
     Route: 048

REACTIONS (8)
  - COVID-19 [Unknown]
  - SARS-CoV-2 test positive [Unknown]
  - Dyspnoea [Unknown]
  - Nasal congestion [Unknown]
  - Headache [Unknown]
  - Cough [Unknown]
  - Tachypnoea [Unknown]
  - COVID-19 pneumonia [Unknown]

NARRATIVE: CASE EVENT DATE: 20220101
